FAERS Safety Report 9014172 (Version 2)
Quarter: 2013Q1

REPORT INFORMATION
  Report Type: Spontaneous
  Country: DK (occurrence: DK)
  Receive Date: 20130115
  Receipt Date: 20130130
  Transmission Date: 20140127
  Serious: Yes (Death, Other)
  Sender: FDA-Public Use
  Company Number: PHHY2013DK003473

PATIENT
  Age: 76 None
  Sex: Female
  Weight: 93 kg

DRUGS (8)
  1. RISPERANNE [Suspect]
     Indication: PSYCHOTIC DISORDER
     Dosage: 1 DF, DAILY
  2. RISPERANNE [Suspect]
     Indication: PSYCHOTIC DISORDER
  3. METFORMIN [Concomitant]
     Indication: DIABETES MELLITUS
  4. KALEORID [Concomitant]
  5. SIMVASTATIN [Concomitant]
     Indication: HYPERCHOLESTEROLAEMIA
  6. PANTOPRAZOL [Concomitant]
     Indication: GASTROOESOPHAGEAL REFLUX DISEASE
  7. CITALOPRAM [Concomitant]
     Indication: DEPRESSION
  8. MIRTAZAPIN [Concomitant]
     Indication: DEPRESSION

REACTIONS (3)
  - Pulmonary embolism [Fatal]
  - Embolism venous [Fatal]
  - Diabetes mellitus [Unknown]
